FAERS Safety Report 20969208 (Version 2)
Quarter: 2022Q3

REPORT INFORMATION
  Report Type: Report from Study
  Country: CZ (occurrence: CZ)
  Receive Date: 20220616
  Receipt Date: 20220729
  Transmission Date: 20221027
  Serious: Yes (Other)
  Sender: FDA-Public Use
  Company Number: CZ-ABBVIE-22K-217-4435973-00

PATIENT
  Age: 44 Year
  Sex: Female
  Weight: 100 kg

DRUGS (6)
  1. HUMIRA [Suspect]
     Active Substance: ADALIMUMAB
     Indication: Crohn^s disease
     Dosage: INDUCTION
     Route: 058
     Dates: start: 20220317, end: 20220317
  2. HUMIRA [Suspect]
     Active Substance: ADALIMUMAB
     Route: 058
     Dates: start: 2022, end: 20220610
  3. IMASUP [Concomitant]
     Indication: Crohn^s disease
     Dosage: 1-0-0
     Route: 048
     Dates: start: 2009
  4. OMEPRAZOLE [Concomitant]
     Active Substance: OMEPRAZOLE
     Indication: Gastric ulcer
     Dosage: 1-0-0
     Route: 048
     Dates: start: 201004
  5. LEVOTHYROXINE SODIUM [Concomitant]
     Active Substance: LEVOTHYROXINE SODIUM
     Indication: Thyroidectomy
     Dosage: 1-0-0
     Route: 048
  6. USTEKINUMAB [Concomitant]
     Active Substance: USTEKINUMAB
     Indication: Product used for unknown indication

REACTIONS (3)
  - Palmoplantar pustulosis [Recovering/Resolving]
  - Pyoderma [Recovering/Resolving]
  - Erythema [Recovering/Resolving]

NARRATIVE: CASE EVENT DATE: 20220327
